FAERS Safety Report 19036897 (Version 3)
Quarter: 2021Q4

REPORT INFORMATION
  Report Type: Spontaneous
  Country: US (occurrence: US)
  Receive Date: 20210322
  Receipt Date: 20211210
  Transmission Date: 20220304
  Serious: No
  Sender: FDA-Public Use
  Company Number: US-SA-2021SA093606

PATIENT
  Sex: Female

DRUGS (8)
  1. DUPIXENT [Suspect]
     Active Substance: DUPILUMAB
     Indication: Dermatitis atopic
     Dosage: 300 MG, QOW
     Route: 058
     Dates: start: 202103
  2. DUPIXENT [Suspect]
     Active Substance: DUPILUMAB
     Indication: Thyroid cancer
  3. THYROGEN [Concomitant]
     Active Substance: THYROTROPIN ALFA
  4. CALCITRIOL [Concomitant]
     Active Substance: CALCITRIOL
  5. EPINEPHRINE [Concomitant]
     Active Substance: EPINEPHRINE
  6. SYNTHROID [Concomitant]
     Active Substance: LEVOTHYROXINE SODIUM
  7. PFIZER-BIONTECH COVID-19 VACCINE [Concomitant]
     Active Substance: TOZINAMERAN
     Indication: Immunisation
  8. STERILE WATER [Concomitant]
     Active Substance: WATER

REACTIONS (9)
  - Oropharyngeal discomfort [Unknown]
  - Bone pain [Recovering/Resolving]
  - Limb discomfort [Recovering/Resolving]
  - Weight increased [Unknown]
  - Injection site swelling [Recovering/Resolving]
  - Nasopharyngitis [Unknown]
  - Cough [Unknown]
  - Arthralgia [Recovering/Resolving]
  - Product use in unapproved indication [Unknown]
